FAERS Safety Report 8521278-9 (Version None)
Quarter: 2012Q3

REPORT INFORMATION
  Report Type: 
  Country: None (occurrence: None)
  Receive Date: 20120719
  Receipt Date: 20120516
  Transmission Date: 20120928
  Serious: Yes (Other)
  Sender: FDA-Public Use
  Company Number: KR-ROCHE-1068163

PATIENT

DRUGS (5)
  1. GEMCITABINE HYDROCHLORIDE [Suspect]
     Indication: BREAST CANCER
     Dosage: ON DAYS 1 AND 8 EVERY 21 DAYS
  2. HERCEPTIN [Suspect]
     Dosage: WITHIN 2 WEEKS AFTER CURATIVE SURGERY UNTIL 52 WEEKS OF THERAPY WAS COMPLETED
     Route: 042
  3. PACLITAXEL [Suspect]
     Indication: BREAST CANCER
     Dosage: OVER 1 H ON DAYS 1 AND 8 EVERY 21 DAYS
  4. HERCEPTIN [Suspect]
     Indication: BREAST CANCER
     Dosage: OVER 90 MIN ON DAY 1
     Route: 042
  5. HERCEPTIN [Suspect]
     Dosage: OVER 30 MIN WEEKLY
     Route: 042

REACTIONS (9)
  - FEBRILE NEUTROPENIA [None]
  - FATIGUE [None]
  - THROMBOCYTOPENIA [None]
  - STOMATITIS [None]
  - LEUKOPENIA [None]
  - ALANINE AMINOTRANSFERASE INCREASED [None]
  - NEUTROPENIA [None]
  - DECREASED APPETITE [None]
  - ASPARTATE AMINOTRANSFERASE INCREASED [None]
